FAERS Safety Report 18738934 (Version 3)
Quarter: 2021Q1

REPORT INFORMATION
  Report Type: Report from Study
  Country: CA (occurrence: CA)
  Receive Date: 20210114
  Receipt Date: 20210217
  Transmission Date: 20210419
  Serious: Yes (Hospitalization, Other)
  Sender: FDA-Public Use
  Company Number: CA-JNJFOC-20210108078

PATIENT
  Age: 17 Year
  Sex: Female

DRUGS (2)
  1. REMICADE [Suspect]
     Active Substance: INFLIXIMAB
     Dosage: LAST DOSE RECEIVED ON 17 /JAN/2021
     Route: 042
  2. REMICADE [Suspect]
     Active Substance: INFLIXIMAB
     Indication: COLITIS ULCERATIVE
     Route: 042

REACTIONS (2)
  - Abscess [Unknown]
  - Fistula [Unknown]

NARRATIVE: CASE EVENT DATE: 20210105
